FAERS Safety Report 5843405-4 (Version None)
Quarter: 2008Q3

REPORT INFORMATION
  Report Type: 
  Country: None (occurrence: None)
  Receive Date: 20080813
  Receipt Date: 20080805
  Transmission Date: 20090109
  Serious: Yes (Life-Threatening, Hospitalization)
  Sender: FDA-Public Use
  Company Number: B0468024A

PATIENT
  Age: 36 Year
  Sex: Male
  Weight: 70.8 kg

DRUGS (3)
  1. GW679769 [Suspect]
     Indication: DRUG INTERACTION
     Route: 048
     Dates: start: 20070313, end: 20070418
  2. DEXAMETHASONE TAB [Suspect]
     Indication: DRUG INTERACTION
     Route: 048
     Dates: start: 20070330, end: 20070418
  3. ONDANSETRON [Suspect]
     Indication: DRUG INTERACTION
     Dosage: 32MG SEE DOSAGE TEXT
     Route: 042
     Dates: start: 20070330, end: 20070416

REACTIONS (26)
  - ATELECTASIS [None]
  - BLOOD CHLORIDE DECREASED [None]
  - BLOOD GLUCOSE INCREASED [None]
  - BLOOD PRESSURE SYSTOLIC INCREASED [None]
  - BLOOD SODIUM DECREASED [None]
  - BODY TEMPERATURE INCREASED [None]
  - CHEST PAIN [None]
  - CREPITATIONS [None]
  - DISSEMINATED INTRAVASCULAR COAGULATION [None]
  - DRY SKIN [None]
  - HAEMATOCRIT DECREASED [None]
  - HAEMOGLOBIN DECREASED [None]
  - INTERNATIONAL NORMALISED RATIO DECREASED [None]
  - LEFT VENTRICULAR HYPERTROPHY [None]
  - LIVER DISORDER [None]
  - LUNG NEOPLASM MALIGNANT [None]
  - LYMPHOCYTE PERCENTAGE DECREASED [None]
  - NEUTROPHIL PERCENTAGE INCREASED [None]
  - PERICARDIAL EFFUSION [None]
  - PERICARDITIS [None]
  - PLEURAL EFFUSION [None]
  - PNEUMONIA [None]
  - PROTEIN C DECREASED [None]
  - PULMONARY EMBOLISM [None]
  - PULMONARY INFARCTION [None]
  - SKIN WARM [None]
